FAERS Safety Report 8208718 (Version 7)
Quarter: 2014Q3

REPORT INFORMATION
  Report Type: Report from Study
  Country: US (occurrence: US)
  Receive Date: 20111028
  Receipt Date: 20140722
  Transmission Date: 20150326
  Serious: Yes (Death, Hospitalization, Other)
  Sender: FDA-Public Use
  Company Number: US-BRISTOL-MYERS SQUIBB COMPANY-16188864

PATIENT
  Age: 77 Year
  Sex: Female
  Weight: 63.95 kg

DRUGS (2)
  1. IPILIMUMAB [Suspect]
     Active Substance: IPILIMUMAB
     Indication: MALIGNANT MELANOMA
     Route: 042
     Dates: start: 20110804, end: 20110916
  2. LEUKINE [Suspect]
     Active Substance: SARGRAMOSTIM
     Indication: MALIGNANT MELANOMA
     Route: 058
     Dates: start: 20110804, end: 20110919

REACTIONS (8)
  - Embolism [Unknown]
  - Rash [Unknown]
  - Pseudomembranous colitis [Unknown]
  - Large intestine perforation [Fatal]
  - Diarrhoea [Not Recovered/Not Resolved]
  - Colitis ulcerative [Unknown]
  - Platelet count decreased [Unknown]
  - Large intestinal haemorrhage [Unknown]

NARRATIVE: CASE EVENT DATE: 2011
